FAERS Safety Report 16922142 (Version 1)
Quarter: 2019Q4

REPORT INFORMATION
  Report Type: Spontaneous
  Country: FR (occurrence: FR)
  Receive Date: 20191015
  Receipt Date: 20191015
  Transmission Date: 20200122
  Serious: Yes (Hospitalization)
  Sender: FDA-Public Use
  Company Number: FR-BEH-2019107765

PATIENT
  Age: 71 Year
  Sex: Female
  Weight: 47 kg

DRUGS (16)
  1. SERESTA [Concomitant]
     Active Substance: OXAZEPAM
     Dosage: 10 MILLIGRAM, QD
     Route: 048
  2. COUMADINE [Concomitant]
     Active Substance: WARFARIN SODIUM
     Dosage: 1.5 DOSAGE FORM, QD
     Route: 048
  3. SMECTA [Concomitant]
     Active Substance: MONTMORILLONITE
     Dosage: 3 GRAM/15 ML, QD
     Route: 048
  4. PRIVIGEN [Suspect]
     Active Substance: HUMAN IMMUNOGLOBULIN G
     Indication: SYSTEMIC SCLERODERMA
     Route: 042
     Dates: start: 20190805, end: 20190806
  5. POTASSIUM CHLORIDE. [Concomitant]
     Active Substance: POTASSIUM CHLORIDE
     Route: 042
     Dates: start: 20190802, end: 20190805
  6. MAG 2 [MAGNESIUM CARBONATE] [Concomitant]
     Active Substance: MAGNESIUM CARBONATE
     Dosage: 100 MILLIGRAM, QD
     Route: 048
  7. GLUCOSE [Concomitant]
     Active Substance: DEXTROSE
     Route: 042
     Dates: start: 20190802, end: 20190805
  8. PHOSPHONEUROS [Concomitant]
     Active Substance: CALCIUM PHOSPHATE, DIBASIC, ANHYDROUS\MAGNESIUM GLYCEROPHOSPHATE\PHOSPHORIC ACID\SODIUM PHOSPHATE, DIBASIC
     Dosage: UNK
     Route: 048
  9. PRIVIGEN [Suspect]
     Active Substance: HUMAN IMMUNOGLOBULIN G
     Indication: SYSTEMIC SCLERODERMA
     Route: 048
     Dates: start: 20190803, end: 20190806
  10. BECILAN [Concomitant]
     Active Substance: PYRIDOXINE
     Dosage: 250 MILLIGRAM
     Route: 048
  11. BEVITINE [Concomitant]
     Active Substance: THIAMINE HYDROCHLORIDE
     Dosage: 250 MILLIGRAM, 2 DOSAGE FORM QD
     Route: 048
  12. KEPPRA [Concomitant]
     Active Substance: LEVETIRACETAM
     Indication: SEIZURE
     Dosage: 100 MILLIGRAM PER MILLILITRE
     Route: 048
  13. MAGNESIUM [Concomitant]
     Active Substance: MAGNESIUM
     Route: 042
     Dates: start: 20190802, end: 20190805
  14. PANTOPRAZOLE [Concomitant]
     Active Substance: PANTOPRAZOLE
     Dosage: 20 MILLIGRAM, QD
     Route: 048
  15. DOMPERIDONE [Concomitant]
     Active Substance: DOMPERIDONE
     Dosage: 30 MILLIGRAM, QD
     Route: 048
  16. GLUCONATE DE POTASSIUM [Concomitant]
     Indication: PRODUCT USED FOR UNKNOWN INDICATION
     Dosage: UNK
     Route: 048
     Dates: start: 20190803

REACTIONS (5)
  - Neutropenia [Recovered/Resolved]
  - No adverse event [Unknown]
  - Product use in unapproved indication [Unknown]
  - Leukopenia [Recovered/Resolved]
  - Incorrect route of product administration [Unknown]

NARRATIVE: CASE EVENT DATE: 20190806
